FAERS Safety Report 20763302 (Version 1)
Quarter: 2022Q2

REPORT INFORMATION
  Report Type: Report from Study
  Country: US (occurrence: US)
  Receive Date: 20220428
  Receipt Date: 20220428
  Transmission Date: 20220721
  Serious: No
  Sender: FDA-Public Use
  Company Number: US-KYOWAKIRIN-2022BKK005884

PATIENT

DRUGS (1)
  1. CRYSVITA [Suspect]
     Active Substance: BUROSUMAB-TWZA
     Indication: Hereditary hypophosphataemic rickets
     Dosage: UNK, EVERY 14 DAYS
     Route: 065

REACTIONS (5)
  - Arthralgia [Recovering/Resolving]
  - Gait disturbance [Unknown]
  - COVID-19 [Unknown]
  - Asthenia [Unknown]
  - Appetite disorder [Unknown]

NARRATIVE: CASE EVENT DATE: 20210101
